FAERS Safety Report 21891869 (Version 5)
Quarter: 2023Q2

REPORT INFORMATION
  Report Type: Report from Study
  Country: US (occurrence: US)
  Receive Date: 20230120
  Receipt Date: 20230615
  Transmission Date: 20230721
  Serious: Yes (Hospitalization, Other)
  Sender: FDA-Public Use
  Company Number: US-GILEAD-2023-0613595

PATIENT
  Age: 65 Year
  Sex: Female

DRUGS (1)
  1. SOFOSBUVIR\VELPATASVIR [Suspect]
     Active Substance: SOFOSBUVIR\VELPATASVIR
     Indication: Hepatitis C
     Dosage: 1 TABLET BY MOUTH QD,400/100MG
     Route: 048
     Dates: start: 20221116, end: 20230504

REACTIONS (9)
  - Bell^s palsy [Not Recovered/Not Resolved]
  - Osteomyelitis [Recovered/Resolved]
  - Cerebrovascular accident [Unknown]
  - Pancreatitis [Recovered/Resolved]
  - Pancreatolithiasis [Recovered/Resolved]
  - Nausea [Recovered/Resolved]
  - Gout [Recovered/Resolved]
  - Weight decreased [Unknown]
  - Product dose omission issue [Recovered/Resolved]

NARRATIVE: CASE EVENT DATE: 20230101
